FAERS Safety Report 4551029-4 (Version None)
Quarter: 2005Q1

REPORT INFORMATION
  Report Type: 
  Country: None (occurrence: None)
  Receive Date: 20050113
  Receipt Date: 20040414
  Transmission Date: 20050727
  Serious: No
  Sender: FDA-Public Use
  Company Number: US-BRISTOL-MYERS SQUIBB COMPANY-12560108

PATIENT
  Sex: Female

DRUGS (3)
  1. TRAZODONE HCL [Suspect]
     Indication: SLEEP DISORDER
     Dosage: 50 TO 100 MG ONCE A DAY
     Route: 048
  2. LEXAPRO [Concomitant]
  3. TEGRETOL [Concomitant]

REACTIONS (2)
  - BLEPHAROSPASM [None]
  - FLUID RETENTION [None]
